FAERS Safety Report 6318765-0 (Version None)
Quarter: 2009Q3

REPORT INFORMATION
  Report Type: 
  Country: None (occurrence: None)
  Receive Date: 20090819
  Receipt Date: 20090810
  Transmission Date: 20100115
  Serious: Yes (Hospitalization)
  Sender: FDA-Public Use
  Company Number: 230012M09SWE

PATIENT
  Age: 37 Year
  Sex: Female

DRUGS (3)
  1. REBIF [Suspect]
     Indication: MULTIPLE SCLEROSIS
     Dosage: 34 MCG, 3 IN 1 WEEKS
     Dates: start: 20010101, end: 20090416
  2. NEXIUM [Concomitant]
  3. PLAVIX [Concomitant]

REACTIONS (6)
  - BLOOD CREATININE INCREASED [None]
  - HYPERTENSION [None]
  - RAYNAUD'S PHENOMENON [None]
  - RENAL DISORDER [None]
  - SKIN ULCER [None]
  - WOUND INFECTION [None]
